FAERS Safety Report 4347086-0 (Version None)
Quarter: 2004Q2

REPORT INFORMATION
  Report Type: 
  Country: None (occurrence: None)
  Receive Date: 20040426
  Receipt Date: 20040420
  Transmission Date: 20050107
  Serious: Yes (Hospitalization)
  Sender: FDA-Public Use
  Company Number: FR-GLAXOSMITHKLINE-B0330435A

PATIENT
  Age: 32 Year
  Sex: Male

DRUGS (1)
  1. AMOXICILLIN [Suspect]
     Indication: PHARYNGITIS
     Dosage: 1G TWICE PER DAY
     Route: 030
     Dates: start: 19990101, end: 19990101

REACTIONS (12)
  - ALOPECIA [None]
  - BLINDNESS UNILATERAL [None]
  - DEPILATION [None]
  - HEADACHE [None]
  - HYPOACUSIS [None]
  - MADAROSIS [None]
  - MUCOUS MEMBRANE DISORDER [None]
  - PYREXIA [None]
  - RASH [None]
  - TOXIC EPIDERMAL NECROLYSIS [None]
  - VISUAL ACUITY REDUCED [None]
  - VOMITING [None]
